FAERS Safety Report 16680421 (Version 1)
Quarter: 2019Q3

REPORT INFORMATION
  Report Type: Spontaneous
  Country: US (occurrence: US)
  Receive Date: 20190807
  Receipt Date: 20190807
  Transmission Date: 20191004
  Serious: No
  Sender: FDA-Public Use
  Company Number: US-GILEAD-2019-0422397

PATIENT

DRUGS (14)
  1. EMTRIVA [Concomitant]
     Active Substance: EMTRICITABINE
     Dosage: UNKNOWN
  2. VITAMIN B12 [Concomitant]
     Active Substance: CYANOCOBALAMIN
     Dosage: UNKNOWN
  3. ABACAVIR. [Concomitant]
     Active Substance: ABACAVIR
     Dosage: UNKNOWN
  4. GABAPENTIN. [Concomitant]
     Active Substance: GABAPENTIN
     Dosage: UNKNOWN
  5. TOPAMAX [Concomitant]
     Active Substance: TOPIRAMATE
     Dosage: UNKNOWN
  6. BACLOFEN. [Concomitant]
     Active Substance: BACLOFEN
     Dosage: UNKNOWN
  7. LORAZEPAM. [Concomitant]
     Active Substance: LORAZEPAM
     Dosage: UNKNOWN
  8. PROBIOTICS NOS [Concomitant]
     Active Substance: PROBIOTICS NOS
     Dosage: UNKNOWN
  9. TIVICAY [Concomitant]
     Active Substance: DOLUTEGRAVIR SODIUM
     Dosage: UNKNOWN
  10. VITAMIN D3 [Concomitant]
     Active Substance: CHOLECALCIFEROL
     Dosage: UNKNOWN
  11. EPCLUSA [Suspect]
     Active Substance: SOFOSBUVIR\VELPATASVIR
     Indication: CHRONIC HEPATITIS C
     Dosage: 1 DOSAGE FORM, QD
     Route: 048
     Dates: start: 20190720
  12. SERTRALINE HYDROCHLORIDE. [Concomitant]
     Active Substance: SERTRALINE HYDROCHLORIDE
     Dosage: UNKNOWN
  13. ECK NASAL SPRAY [Concomitant]
     Dosage: UNK, BID
     Route: 045
  14. CARAFATE [Concomitant]
     Active Substance: SUCRALFATE
     Dosage: UNKNOWN

REACTIONS (1)
  - Abdominal pain upper [Recovered/Resolved]
